FAERS Safety Report 5500714-6 (Version None)
Quarter: 2007Q4

REPORT INFORMATION
  Report Type: 
  Country: None (occurrence: None)
  Receive Date: 20071025
  Receipt Date: 20071012
  Transmission Date: 20080405
  Serious: No
  Sender: FDA-Public Use
  Company Number: 237211K07USA

PATIENT
  Age: 50 Year
  Sex: Female
  Weight: 79.8331 kg

DRUGS (6)
  1. REBIF [Suspect]
     Indication: MULTIPLE SCLEROSIS
     Dosage: 44 MCG, 3 IN 1 WEEKS; SUBCUTANEOUS
     Route: 058
     Dates: start: 20070404
  2. KEPPRA [Concomitant]
  3. LAMICTAL [Concomitant]
  4. ATIVAN [Concomitant]
  5. NAPROXEN [Concomitant]
  6. PREMPRO (PROVELLA-14) [Concomitant]

REACTIONS (7)
  - BLOOD CHOLESTEROL INCREASED [None]
  - CARDIAC STRESS TEST ABNORMAL [None]
  - DEPRESSION [None]
  - INJECTION SITE BRUISING [None]
  - INJECTION SITE ERYTHEMA [None]
  - INJECTION SITE IRRITATION [None]
  - INJECTION SITE REACTION [None]
